FAERS Safety Report 8956731 (Version 1)
Quarter: 2012Q4

REPORT INFORMATION
  Report Type: 
  Country: IL (occurrence: IL)
  Receive Date: 20121211
  Receipt Date: 20121211
  Transmission Date: 20130627
  Serious: Yes (Other)
  Sender: FDA-Public Use
  Company Number: IL-PFIZER INC-2005071673

PATIENT
  Age: 27 Year
  Sex: Male

DRUGS (2)
  1. IBUPROFEN [Suspect]
     Indication: BACK PAIN
     Dosage: 600 MG, IN 1 DAY
     Route: 048
  2. RISPERIDONE [Concomitant]
     Dosage: 2 MG, 1 IN 1 DAY
     Route: 065

REACTIONS (2)
  - Condition aggravated [Recovered/Resolved]
  - Psychotic disorder [Recovered/Resolved]
